FAERS Safety Report 5701932-4 (Version None)
Quarter: 2008Q2

REPORT INFORMATION
  Report Type: 
  Country: None (occurrence: None)
  Receive Date: 20080411
  Receipt Date: 20080404
  Transmission Date: 20081010
  Serious: Yes (Other)
  Sender: FDA-Public Use
  Company Number: US-AMGEN-US269318

PATIENT
  Sex: Male
  Weight: 94.4 kg

DRUGS (3)
  1. PROCRIT [Suspect]
     Indication: ANAEMIA
     Route: 058
     Dates: start: 20070628, end: 20071212
  2. RIBAVIRIN [Suspect]
     Dates: start: 20070601, end: 20071001
  3. INTERFERON [Suspect]
     Dates: start: 20070601, end: 20071001

REACTIONS (1)
  - APLASTIC ANAEMIA [None]
